FAERS Safety Report 6539296-9 (Version None)
Quarter: 2010Q1

REPORT INFORMATION
  Report Type: 
  Country: None (occurrence: None)
  Receive Date: 20100115
  Receipt Date: 20100111
  Transmission Date: 20100710
  Serious: Yes (Life-Threatening, Hospitalization, Other)
  Sender: FDA-Public Use
  Company Number: IN-JNJFOC-20100103814

PATIENT
  Age: 65 Year
  Sex: Female

DRUGS (6)
  1. HALOPERIDOL [Suspect]
     Indication: SCHIZOPHRENIA
     Dosage: SINCE THE AGE OF 37 YEARS
     Route: 065
  2. HALOPERIDOL [Suspect]
     Route: 065
  3. CHLORPROMAZINE [Suspect]
     Indication: SCHIZOPHRENIA
     Route: 065
  4. CHLORPROMAZINE [Suspect]
     Route: 065
  5. TRIHEXYPHENIDYL HCL [Suspect]
     Indication: SCHIZOPHRENIA
     Route: 065
  6. TRIHEXYPHENIDYL HCL [Suspect]
     Route: 065

REACTIONS (6)
  - BLOOD PRESSURE DECREASED [None]
  - INTENTIONAL SELF-INJURY [None]
  - LOSS OF CONSCIOUSNESS [None]
  - METABOLIC ACIDOSIS [None]
  - MULTIPLE DRUG OVERDOSE INTENTIONAL [None]
  - MYOCARDITIS [None]
